FAERS Safety Report 18934873 (Version 1)
Quarter: 2021Q1

REPORT INFORMATION
  Report Type: Spontaneous
  Country: US (occurrence: US)
  Receive Date: 20210224
  Receipt Date: 20210224
  Transmission Date: 20210420
  Serious: Yes (Other)
  Sender: FDA-Public Use
  Company Number: US-TERSERA THERAPEUTICS LLC-2019TRS001119

PATIENT

DRUGS (29)
  1. PRIALT [Suspect]
     Active Substance: ZICONOTIDE ACETATE
     Dosage: 1.249 MCG, QD
     Route: 037
  2. DILAUDID [Suspect]
     Active Substance: HYDROMORPHONE HYDROCHLORIDE
     Dosage: 0.798 MG, QD
     Route: 037
  3. BUPIVACAINE. [Suspect]
     Active Substance: BUPIVACAINE
     Dosage: 0.864 MG, QD
     Route: 037
  4. BACLOFEN. [Suspect]
     Active Substance: BACLOFEN
     Dosage: 21.60 MCG, QD
     Route: 065
  5. PRIALT [Suspect]
     Active Substance: ZICONOTIDE ACETATE
     Dosage: 2.246 MCG, QD (CONCENTRATION: 7.5 MCG)
     Route: 037
  6. DILAUDID [Suspect]
     Active Substance: HYDROMORPHONE HYDROCHLORIDE
     Indication: PRODUCT USED FOR UNKNOWN INDICATION
     Dosage: 0.550 MG, QD
     Route: 037
  7. BUPIVACAINE. [Suspect]
     Active Substance: BUPIVACAINE
     Dosage: 5.991 MG, QD (CONCENTRATION: 20 MG)
     Route: 037
  8. BUPIVACAINE. [Suspect]
     Active Substance: BUPIVACAINE
     Dosage: 0.499 MG, QD
     Route: 037
  9. BUPIVACAINE. [Suspect]
     Active Substance: BUPIVACAINE
     Dosage: 6.748 MG, QD
     Route: 037
  10. DILAUDID [Suspect]
     Active Substance: HYDROMORPHONE HYDROCHLORIDE
     Dosage: 1.198 MG, QD (CONCENTRATION: 4 MG)
     Route: 037
  11. BACLOFEN. [Suspect]
     Active Substance: BACLOFEN
     Dosage: 19.95 MCG, QD
     Route: 065
  12. BACLOFEN. [Suspect]
     Active Substance: BACLOFEN
     Dosage: 49.956 MCG, QD (CONCENTRATION: 200 MCG)
     Route: 065
  13. BACLOFEN. [Suspect]
     Active Substance: BACLOFEN
     Dosage: 67.485 MCG, QD
     Route: 065
  14. OXYCODONE [Concomitant]
     Active Substance: OXYCODONE
     Indication: PAIN
     Dosage: UNK
     Route: 065
  15. DILAUDID [Suspect]
     Active Substance: HYDROMORPHONE HYDROCHLORIDE
     Dosage: 0.864 MG, QD
     Route: 037
  16. BUPIVACAINE. [Suspect]
     Active Substance: BUPIVACAINE
     Dosage: 4.995 MG, QD (CONCENTRATION: 20 MG)
     Route: 037
  17. BACTRIM [Suspect]
     Active Substance: SULFAMETHOXAZOLE\TRIMETHOPRIM
     Indication: HAEMORRHAGE PROPHYLAXIS
     Dosage: UNK
     Route: 065
  18. BACLOFEN. [Suspect]
     Active Substance: BACLOFEN
     Dosage: 59.917 MCG, QD (CONCENTRATION: 200 MCG)
     Route: 065
  19. DILAUDID [Suspect]
     Active Substance: HYDROMORPHONE HYDROCHLORIDE
     Dosage: 0.999 MG, QD (CONCENTRATION: 4 MG)
     Route: 037
  20. DILAUDID [Suspect]
     Active Substance: HYDROMORPHONE HYDROCHLORIDE
     Dosage: 0.499 MG, QD
     Route: 037
  21. BACLOFEN. [Suspect]
     Active Substance: BACLOFEN
     Indication: PRODUCT USED FOR UNKNOWN INDICATION
     Dosage: 13.75 MCG, QD
     Route: 065
  22. PRIALT [Suspect]
     Active Substance: ZICONOTIDE ACETATE
     Indication: PRODUCT USED FOR UNKNOWN INDICATION
     Dosage: 1.375 MCG, QD
     Route: 037
  23. PRIALT [Suspect]
     Active Substance: ZICONOTIDE ACETATE
     Dosage: 2.160 MCG, QD
     Route: 037
  24. PRIALT [Suspect]
     Active Substance: ZICONOTIDE ACETATE
     Dosage: 1.995 MCG, QD
     Route: 037
  25. BUPIVACAINE. [Suspect]
     Active Substance: BUPIVACAINE
     Indication: PRODUCT USED FOR UNKNOWN INDICATION
     Dosage: 0.550 MG, QD
     Route: 037
  26. BACLOFEN. [Suspect]
     Active Substance: BACLOFEN
     Dosage: 12.495 MCG, QD
     Route: 065
  27. PRIALT [Suspect]
     Active Substance: ZICONOTIDE ACETATE
     Dosage: 1.873 MCG, QD (CONCENTRATION: 7.5 MCG)
     Route: 037
  28. DILAUDID [Suspect]
     Active Substance: HYDROMORPHONE HYDROCHLORIDE
     Dosage: 1.349 MG, QD
     Route: 037
  29. BUPIVACAINE. [Suspect]
     Active Substance: BUPIVACAINE
     Dosage: 0.798 MG, QD
     Route: 037

REACTIONS (14)
  - Vomiting [Recovered/Resolved]
  - Nausea [Recovered/Resolved]
  - Implant site oedema [Not Recovered/Not Resolved]
  - Formication [Not Recovered/Not Resolved]
  - Dysuria [Recovering/Resolving]
  - Hallucination, auditory [Recovered/Resolved]
  - Hypoaesthesia [Not Recovered/Not Resolved]
  - Adverse drug reaction [Recovered/Resolved]
  - Withdrawal syndrome [Recovered/Resolved]
  - Diarrhoea [Recovered/Resolved]
  - Implant site pain [Recovered/Resolved]
  - Off label use [Unknown]
  - Implant site haematoma [Recovered/Resolved]
  - Implant site haemorrhage [Recovered/Resolved]

NARRATIVE: CASE EVENT DATE: 20190424
